FAERS Safety Report 7900362-4 (Version None)
Quarter: 2011Q4

REPORT INFORMATION
  Report Type: 
  Country: None (occurrence: None)
  Receive Date: 20111108
  Receipt Date: 20111103
  Transmission Date: 20120403
  Serious: No
  Sender: FDA-Public Use
  Company Number: US-PFIZER INC-2011270447

PATIENT
  Sex: Female
  Weight: 63.492 kg

DRUGS (2)
  1. IBUPROFEN (ADVIL) [Suspect]
     Indication: DYSMENORRHOEA
     Dosage: 200 MG, AS NEEDED
     Route: 048
  2. IBUPROFEN [Suspect]
     Indication: DYSMENORRHOEA
     Dosage: UNK

REACTIONS (4)
  - HEADACHE [None]
  - EYE PAIN [None]
  - DIZZINESS [None]
  - PYREXIA [None]
